FAERS Safety Report 18959591 (Version 1)
Quarter: 2021Q1

REPORT INFORMATION
  Report Type: Spontaneous
  Country: CN (occurrence: CN)
  Receive Date: 20210302
  Receipt Date: 20210302
  Transmission Date: 20210420
  Serious: Yes (Other)
  Sender: FDA-Public Use
  Company Number: CN-PFIZER INC-2021206559

PATIENT
  Age: 64 Year
  Sex: Male
  Weight: 78 kg

DRUGS (2)
  1. VENLAFAXINE HCL [Suspect]
     Active Substance: VENLAFAXINE HYDROCHLORIDE
     Indication: ANXIETY DISORDER
     Dosage: 150.000 MG, 1X/DAY
     Route: 048
     Dates: start: 20210119, end: 20210215
  2. ESTAZOLAM. [Concomitant]
     Active Substance: ESTAZOLAM
     Indication: SLEEP DISORDER
     Dosage: 1.000 MG, 1X/DAY
     Route: 048
     Dates: start: 20210119, end: 20210126

REACTIONS (5)
  - Taste disorder [Unknown]
  - Pollakiuria [Unknown]
  - Dizziness [Unknown]
  - Regurgitation [Unknown]
  - Dry mouth [Unknown]

NARRATIVE: CASE EVENT DATE: 20210126
